FAERS Safety Report 19899964 (Version 1)
Quarter: 2021Q3

REPORT INFORMATION
  Report Type: Spontaneous
  Country: US (occurrence: US)
  Receive Date: 20210930
  Receipt Date: 20210930
  Transmission Date: 20211014
  Serious: No
  Sender: FDA-Public Use
  Company Number: None

PATIENT
  Age: 47 Year
  Sex: Female
  Weight: 120.2 kg

DRUGS (1)
  1. IRON SUCROSE [Suspect]
     Active Substance: IRON SUCROSE
     Indication: IRON DEFICIENCY ANAEMIA
     Dosage: ?          OTHER FREQUENCY:5 DOSES IN 2 WEEKS;?
     Route: 042
     Dates: start: 20210920, end: 20210930

REACTIONS (4)
  - Mood altered [None]
  - Anger [None]
  - Aggression [None]
  - Anxiety [None]
